FAERS Safety Report 11610411 (Version 1)
Quarter: 2015Q4

REPORT INFORMATION
  Report Type: Spontaneous
  Country: US (occurrence: US)
  Receive Date: 20151008
  Receipt Date: 20151008
  Transmission Date: 20160304
  Serious: Yes (Hospitalization, Other)
  Sender: FDA-Public Use
  Company Number: US-PFIZER INC-2015322500

PATIENT
  Age: 10 Year

DRUGS (1)
  1. IBUPROFEN. [Suspect]
     Active Substance: IBUPROFEN
     Indication: PYREXIA
     Dosage: UNK

REACTIONS (5)
  - Stevens-Johnson syndrome [Unknown]
  - Hypersensitivity [Unknown]
  - Haematemesis [Unknown]
  - Blood urine present [Unknown]
  - Multi-organ failure [Unknown]

NARRATIVE: CASE EVENT DATE: 2005
